FAERS Safety Report 11512704 (Version 1)
Quarter: 2015Q3

REPORT INFORMATION
  Report Type: Spontaneous
  Country: US (occurrence: US)
  Receive Date: 20150903
  Receipt Date: 20150903
  Transmission Date: 20151125
  Serious: No
  Sender: FDA-Public Use
  Company Number: US-ELI_LILLY_AND_COMPANY-US201003006129

PATIENT
  Sex: Male

DRUGS (4)
  1. NOVOLOG [Concomitant]
     Active Substance: INSULIN ASPART
  2. HUMALOG MIX75/25 [Suspect]
     Active Substance: INSULIN LISPRO
     Dosage: 51 U, EACH EVENING
     Dates: start: 200903
  3. BYETTA [Concomitant]
     Active Substance: EXENATIDE
  4. HUMALOG MIX75/25 [Suspect]
     Active Substance: INSULIN LISPRO
     Indication: DIABETES MELLITUS
     Dosage: 51 U, EACH EVENING
     Dates: start: 200903

REACTIONS (6)
  - Drug ineffective [Unknown]
  - Malabsorption from injection site [Unknown]
  - Injection site pain [Unknown]
  - Poor quality drug administered [Unknown]
  - Blood glucose increased [Unknown]
  - Incorrect product storage [Unknown]

NARRATIVE: CASE EVENT DATE: 201002
